FAERS Safety Report 13492352 (Version 3)
Quarter: 2017Q2

REPORT INFORMATION
  Report Type: Spontaneous
  Country: DK (occurrence: DK)
  Receive Date: 20170427
  Receipt Date: 20170518
  Transmission Date: 20170830
  Serious: Yes (Hospitalization, Other)
  Sender: FDA-Public Use
  Company Number: DK-GILEAD-2017-0269134

PATIENT
  Age: 57 Year
  Sex: Male
  Weight: 61 kg

DRUGS (6)
  1. AMLODIPIN ACTAVIS                  /00972402/ [Concomitant]
     Active Substance: AMLODIPINE BESYLATE
     Indication: HYPERTENSION
     Dates: start: 20140317
  2. SANDIMMUN NEORAL [Concomitant]
     Active Substance: CYCLOSPORINE
     Indication: PROPHYLAXIS AGAINST TRANSPLANT REJECTION
     Dates: start: 20160624
  3. UNIKALK BASIC [Concomitant]
     Indication: OSTEOPOROSIS
     Dates: start: 20110721
  4. MYCOPHENOLATE MOFETIL. [Concomitant]
     Active Substance: MYCOPHENOLATE MOFETIL
     Indication: PROPHYLAXIS AGAINST TRANSPLANT REJECTION
     Route: 065
     Dates: start: 20150423
  5. DESCOVY [Suspect]
     Active Substance: EMTRICITABINE\TENOFOVIR ALAFENAMIDE FUMARATE
     Indication: HEPATITIS B
     Dosage: 200MG/25MG
     Route: 048
     Dates: start: 20161215, end: 20170203
  6. MABLET [Concomitant]
     Indication: MAGNESIUM DEFICIENCY
     Dates: start: 20140423

REACTIONS (8)
  - Hepatitis B DNA increased [Unknown]
  - Malaise [Unknown]
  - Hepatic failure [Recovered/Resolved]
  - Night sweats [Unknown]
  - Eating disorder symptom [Unknown]
  - Nausea [Unknown]
  - Alanine aminotransferase increased [Unknown]
  - Off label use [Recovered/Resolved]

NARRATIVE: CASE EVENT DATE: 20161215
